FAERS Safety Report 7742902-4 (Version None)
Quarter: 2011Q3

REPORT INFORMATION
  Report Type: 
  Country: None (occurrence: None)
  Receive Date: 20110912
  Receipt Date: 20110831
  Transmission Date: 20111222
  Serious: Yes (Hospitalization)
  Sender: FDA-Public Use
  Company Number: DE-ELI_LILLY_AND_COMPANY-DE201108009317

PATIENT
  Age: 66 Year
  Sex: Male
  Weight: 60 kg

DRUGS (6)
  1. MARCUMAR [Concomitant]
     Indication: THROMBOSIS
     Dosage: UNK, QD
  2. SYMBICORT [Concomitant]
  3. SIMVASTATIN [Concomitant]
  4. FORTEO [Suspect]
     Indication: OSTEOPOROSIS
     Dosage: UNK, QD
     Dates: start: 20110401, end: 20110630
  5. CALCIUM +VIT D [Concomitant]
     Indication: OSTEOPOROSIS
  6. OMEPRAZOLE [Concomitant]

REACTIONS (1)
  - WEIGHT DECREASED [None]
